FAERS Safety Report 8095252-3 (Version None)
Quarter: 2012Q1

REPORT INFORMATION
  Report Type: 
  Country: None (occurrence: None)
  Receive Date: 20120129
  Receipt Date: 20111217
  Transmission Date: 20120608
  Serious: No
  Sender: FDA-Public Use
  Company Number: US-ABBOTT-11P-163-0884698-00

PATIENT
  Age: 59 Year
  Sex: Female

DRUGS (7)
  1. NEURONTIN [Concomitant]
     Indication: NEUROPATHY PERIPHERAL
     Dosage: NOT REPORTED
  2. SYNTHROID [Concomitant]
     Indication: PRODUCT USED FOR UNKNOWN INDICATION
     Dosage: DAILY
  3. ASACOL [Concomitant]
     Indication: PRODUCT USED FOR UNKNOWN INDICATION
     Dosage: NOT REPORTED
  4. SKELAXIN [Concomitant]
     Indication: MUSCLE SPASMS
     Dosage: NOT REPORTED
  5. HUMIRA [Suspect]
     Indication: CROHN'S DISEASE
     Dates: start: 20111031
  6. ULTRAM [Concomitant]
     Indication: PAIN
     Dosage: DAILY
  7. AZOR [Concomitant]
     Indication: HYPERTENSION
     Dosage: DAILY

REACTIONS (4)
  - DYSPHONIA [None]
  - FATIGUE [None]
  - NASOPHARYNGITIS [None]
  - FEELING ABNORMAL [None]
